FAERS Safety Report 4383946-2 (Version None)
Quarter: 2004Q2

REPORT INFORMATION
  Report Type: 
  Country: None (occurrence: None)
  Receive Date: 20040624
  Receipt Date: 20031218
  Transmission Date: 20050107
  Serious: Yes (Other)
  Sender: FDA-Public Use
  Company Number: PHHO2003FR16462

PATIENT
  Age: 49 Year
  Sex: Female

DRUGS (3)
  1. ERL080 [Suspect]
     Indication: RENAL TRANSPLANT
     Dosage: 720 MG, BID
     Route: 048
     Dates: start: 20020817, end: 20030813
  2. ERL080 [Suspect]
     Dosage: 360 MG, BID
     Route: 048
     Dates: start: 20030829, end: 20030918
  3. BACTRIM [Suspect]
     Dosage: NOT REPORTED
     Route: 048
     Dates: start: 20030819, end: 20030918

REACTIONS (1)
  - NEUTROPENIA [None]
